FAERS Safety Report 5574115-9 (Version None)
Quarter: 2007Q4

REPORT INFORMATION
  Report Type: 
  Country: None (occurrence: None)
  Receive Date: 20071221
  Receipt Date: 20071210
  Transmission Date: 20080405
  Serious: Yes (Hospitalization)
  Sender: FDA-Public Use
  Company Number: SPV1-2007-05240

PATIENT
  Age: 19 Year
  Sex: Female

DRUGS (3)
  1. PENTASA [Suspect]
     Indication: COLITIS ULCERATIVE
     Dosage: 1000 MG, 3X/DAY; TID, ORAL; 2250 MG DAILY, ORAL
     Route: 048
     Dates: start: 20070901, end: 20071001
  2. PENTASA [Suspect]
     Indication: COLITIS ULCERATIVE
     Dosage: 1000 MG, 3X/DAY; TID, ORAL; 2250 MG DAILY, ORAL
     Route: 048
     Dates: start: 20071001, end: 20071101
  3. RABEPRAZOLE SODIUM [Concomitant]

REACTIONS (1)
  - PERICARDIAL EFFUSION [None]
